FAERS Safety Report 8221190-9 (Version None)
Quarter: 2012Q1

REPORT INFORMATION
  Report Type: 
  Country: None (occurrence: None)
  Receive Date: 20120320
  Receipt Date: 20120312
  Transmission Date: 20120608
  Serious: Yes (Other)
  Sender: FDA-Public Use
  Company Number: PHFR2012GB001699

PATIENT
  Sex: Female

DRUGS (1)
  1. CLOZARIL [Suspect]
     Indication: SCHIZOPHRENIA
     Dosage: 125 MG, (50 MG MORNING AND 75 MG AT NIGHT)
     Route: 048
     Dates: start: 20120306

REACTIONS (11)
  - OROPHARYNGEAL PAIN [None]
  - LYMPHOCYTE COUNT DECREASED [None]
  - SOMNOLENCE [None]
  - C-REACTIVE PROTEIN INCREASED [None]
  - PLATELET COUNT DECREASED [None]
  - MALAISE [None]
  - LYMPHADENOPATHY [None]
  - HAEMOGLOBIN DECREASED [None]
  - BALANCE DISORDER [None]
  - HYPOTENSION [None]
  - HYPERHIDROSIS [None]
